FAERS Safety Report 7219573-9 (Version None)
Quarter: 2011Q1

REPORT INFORMATION
  Report Type: 
  Country: None (occurrence: None)
  Receive Date: 20110111
  Receipt Date: 20110106
  Transmission Date: 20110831
  Serious: Yes (Hospitalization, Other)
  Sender: FDA-Public Use
  Company Number: US-JNJFOC-20101104826

PATIENT
  Sex: Male

DRUGS (1)
  1. LEVAQUIN [Suspect]
     Indication: URINARY TRACT INFECTION
     Route: 048

REACTIONS (8)
  - CARPAL TUNNEL SYNDROME [None]
  - TENOSYNOVITIS [None]
  - THROMBOSIS [None]
  - ANAEMIA [None]
  - ROTATOR CUFF SYNDROME [None]
  - MUSCLE RUPTURE [None]
  - DRUG DOSE OMISSION [None]
  - ADVERSE EVENT [None]
